FAERS Safety Report 4495604-4 (Version None)
Quarter: 2004Q4

REPORT INFORMATION
  Report Type: 
  Country: None (occurrence: None)
  Receive Date: 20041108
  Receipt Date: 20041101
  Transmission Date: 20050328
  Serious: Yes (Death, Hospitalization)
  Sender: FDA-Public Use
  Company Number: ZA-BRISTOL-MYERS SQUIBB COMPANY-12750881

PATIENT
  Age: 30 Year
  Sex: Female

DRUGS (8)
  1. STAVUDINE [Suspect]
     Indication: HIV INFECTION
     Route: 048
     Dates: start: 20041007, end: 20041025
  2. STOCRIN [Suspect]
     Indication: HIV INFECTION
     Route: 048
     Dates: start: 20041007
  3. LAMIVUDINE [Suspect]
     Indication: HIV INFECTION
     Route: 048
     Dates: start: 20041007
  4. VITAMIN A [Concomitant]
     Dates: start: 20040617
  5. VITAMIN B COMPLEX CAP [Concomitant]
     Dates: start: 20040617
  6. VITAMIN C [Concomitant]
     Dates: start: 20040617
  7. BACTRIM [Concomitant]
     Dates: start: 20040617
  8. ZIDOVUDINE [Concomitant]
     Indication: HIV INFECTION
     Dates: start: 20041001

REACTIONS (3)
  - ASTHENIA [None]
  - DISEASE PROGRESSION [None]
  - NEUROPATHY PERIPHERAL [None]
